FAERS Safety Report 11849454 (Version 1)
Quarter: 2015Q4

REPORT INFORMATION
  Report Type: Spontaneous
  Country: US (occurrence: None)
  Receive Date: 20151217
  Receipt Date: 20151217
  Transmission Date: 20160305
  Serious: Yes (Life-Threatening)
  Sender: FDA-Public Use
  Company Number: None

PATIENT
  Age: 53 Year
  Sex: Female
  Weight: 93.9 kg

DRUGS (9)
  1. MAXALT [Concomitant]
     Active Substance: RIZATRIPTAN BENZOATE
  2. THERALITH (THERALITH CONTAINS: VIT. B6 7.5 MG MAGNESIUM CITRATE 90 MG MAGNESIUM OXIDE 90 MG POTASSIUM 99 MG) [Concomitant]
  3. PROAIR (RESCUE) [Concomitant]
  4. DULERA [Concomitant]
     Active Substance: FORMOTEROL FUMARATE DIHYDRATE\MOMETASONE FUROATE
  5. VITAMIN B-2 (RIBOFLAVIN) [Concomitant]
  6. CONTRAVE [Suspect]
     Active Substance: BUPROPION HYDROCHLORIDE\NALTREXONE HYDROCHLORIDE
     Indication: DECREASED APPETITE
     Dosage: 2 PILLS
     Route: 048
     Dates: start: 20151005, end: 20151208
  7. MAGNESIUM LACTATE [Concomitant]
     Active Substance: MAGNESIUM LACTATE
  8. FLUTICASONE [Concomitant]
     Active Substance: FLUTICASONE\FLUTICASONE PROPIONATE
  9. OMEPRAZOLE. [Concomitant]
     Active Substance: OMEPRAZOLE

REACTIONS (1)
  - Hypertensive crisis [None]

NARRATIVE: CASE EVENT DATE: 20151207
